FAERS Safety Report 20907625 (Version 2)
Quarter: 2022Q2

REPORT INFORMATION
  Report Type: Spontaneous
  Country: JP (occurrence: JP)
  Receive Date: 20220602
  Receipt Date: 20220618
  Transmission Date: 20220720
  Serious: Yes (Hospitalization, Other)
  Sender: FDA-Public Use
  Company Number: JP-SA-SAC20220601000597

PATIENT
  Age: 78 Year
  Sex: Male

DRUGS (31)
  1. SODIUM PICOSULFATE [Suspect]
     Active Substance: SODIUM PICOSULFATE
     Indication: Constipation
     Dosage: AS NEEDED, AT BED TIME; QD
     Route: 048
  2. FOLIC ACID [Suspect]
     Active Substance: FOLIC ACID
     Indication: Hypovitaminosis
     Dosage: 15 MG, QD AFTER EACH MEALS
     Route: 048
  3. FOLIC ACID [Suspect]
     Active Substance: FOLIC ACID
     Dosage: DAILY, AFTER EACH MEALS
     Route: 048
  4. MEMANTINE HYDROCHLORIDE [Suspect]
     Active Substance: MEMANTINE HYDROCHLORIDE
     Indication: Product used for unknown indication
     Dosage: 10 MG, QD AFTER SUPPER
     Route: 048
  5. ASPIRIN [Suspect]
     Active Substance: ASPIRIN
     Indication: Product used for unknown indication
     Dosage: 100 MG, QD; AFTER BREAKFAST
     Route: 048
  6. ACETAMINOPHEN [Suspect]
     Active Substance: ACETAMINOPHEN
     Indication: Product used for unknown indication
     Dosage: 1200 MG, QD AFTER EACH MEALS
     Route: 048
  7. FEXOFENADINE HYDROCHLORIDE [Suspect]
     Active Substance: FEXOFENADINE HYDROCHLORIDE
     Indication: Seasonal allergy
     Dosage: 120 MG, QD; AFTER BREAKFAST AND SUPPER
     Route: 048
  8. FEXOFENADINE HYDROCHLORIDE [Suspect]
     Active Substance: FEXOFENADINE HYDROCHLORIDE
     Dosage: DAILY, AFTER BREAKFAST AND SUPPER
     Route: 048
  9. ESOMEPRAZOLE MAGNESIUM [Suspect]
     Active Substance: ESOMEPRAZOLE MAGNESIUM
     Indication: Product used for unknown indication
     Dosage: 20 MG, QD
     Route: 048
  10. MAGNESIUM OXIDE [Suspect]
     Active Substance: MAGNESIUM OXIDE
     Indication: Constipation
     Dosage: 990 MG, QD AFTER EACH MEALS
  11. MAGNESIUM OXIDE [Suspect]
     Active Substance: MAGNESIUM OXIDE
     Dosage: DAILY, AFTER EACH MEALS
     Route: 048
  12. TRAMADOL HYDROCHLORIDE [Suspect]
     Active Substance: TRAMADOL HYDROCHLORIDE
     Indication: Product used for unknown indication
     Dosage: 50 MG, QD
     Route: 048
  13. TRAMADOL HYDROCHLORIDE [Suspect]
     Active Substance: TRAMADOL HYDROCHLORIDE
     Dosage: 100 MG, QD AFTER SUPPER
     Route: 048
  14. TRAMADOL HYDROCHLORIDE [Suspect]
     Active Substance: TRAMADOL HYDROCHLORIDE
     Dosage: DAILY, AFTER SUPPER
     Route: 048
  15. CARBIDOPA\LEVODOPA [Suspect]
     Active Substance: CARBIDOPA\LEVODOPA
     Indication: Product used for unknown indication
     Dosage: 3 DF, QD AFTER EACH MEALS
     Route: 048
  16. CARBOCYSTEINE [Suspect]
     Active Substance: CARBOCYSTEINE
     Indication: Product used for unknown indication
     Dosage: 1500 MG, QD^ AFTER EACH MEALS
     Route: 048
  17. CARBOCYSTEINE [Suspect]
     Active Substance: CARBOCYSTEINE
     Dosage: DAILY, AFTER EACH MEALS
     Route: 048
  18. SILODOSIN [Suspect]
     Active Substance: SILODOSIN
     Indication: Product used for unknown indication
     Dosage: 8 MG, QD; AFTER BREAKFAST AND SUPPER
     Route: 048
  19. DROXIDOPA [Suspect]
     Active Substance: DROXIDOPA
     Indication: Product used for unknown indication
     Dosage: 100 MG, QD; AFTER BREAKFAST
     Route: 048
  20. AMEZINIUM METILSULFATE [Suspect]
     Active Substance: AMEZINIUM METILSULFATE
     Indication: Product used for unknown indication
     Dosage: 10 MG, QD AFTER BREAKFAST
     Route: 048
  21. HERBALS [Suspect]
     Active Substance: HERBALS
     Indication: Product used for unknown indication
     Dosage: 2.5 MG, QD AFTER SUPPER
     Route: 048
  22. HERBALS [Suspect]
     Active Substance: HERBALS
     Indication: Product used for unknown indication
     Dosage: 5 MG, QD; AT BEDTIME
     Route: 048
  23. LUNESTA [Suspect]
     Active Substance: ESZOPICLONE
     Indication: Product used for unknown indication
     Dosage: 2 MG, QD AT BEDTIME
     Route: 048
  24. LUNESTA [Suspect]
     Active Substance: ESZOPICLONE
     Dosage: DAILY, AT BEDTIME
     Route: 048
  25. BELSOMRA [Suspect]
     Active Substance: SUVOREXANT
     Indication: Product used for unknown indication
     Dosage: 15 MG, QD AT BEDTIME
     Route: 048
  26. BELSOMRA [Suspect]
     Active Substance: SUVOREXANT
     Dosage: DAILY, AT BEDTIME
     Route: 048
  27. POLAPREZINC [Suspect]
     Active Substance: POLAPREZINC
     Indication: Zinc deficiency
     Dosage: 150 MG, QD AFTER BREAKFAST AND SUPPER
     Route: 048
  28. SENNOSIDES [Suspect]
     Active Substance: SENNOSIDES
     Indication: Constipation
     Dosage: UNK UNK, PRN
     Route: 048
  29. LOXOPROFEN SODIUM [Suspect]
     Active Substance: LOXOPROFEN SODIUM
     Indication: Product used for unknown indication
     Dosage: UNK, QD
     Route: 061
  30. LOXOPROFEN SODIUM [Suspect]
     Active Substance: LOXOPROFEN SODIUM
     Dosage: 1 SHEET DAILY ON THE LOW BACK ROUTE: TOP
  31. MIRABEGRON [Suspect]
     Active Substance: MIRABEGRON
     Indication: Product used for unknown indication
     Dosage: 25 MG, QD AFTER SUPPER
     Route: 048

REACTIONS (5)
  - Pneumonia aspiration [Recovered/Resolved]
  - Urinary tract infection [Recovered/Resolved]
  - Sedation complication [Recovered/Resolved]
  - Dehydration [Recovered/Resolved]
  - Pyelonephritis [Recovered/Resolved]
